FAERS Safety Report 6036408-0 (Version None)
Quarter: 2009Q1

REPORT INFORMATION
  Report Type: 
  Country: None (occurrence: None)
  Receive Date: 20090112
  Receipt Date: 20090107
  Transmission Date: 20090719
  Serious: Yes (Hospitalization)
  Sender: FDA-Public Use
  Company Number: SPV1-2008-02802

PATIENT
  Age: 59 Year
  Sex: Male

DRUGS (1)
  1. FOSRENOL [Suspect]
     Dosage: 1000 MG, EACH MEAL, ORAL
     Route: 048

REACTIONS (2)
  - CATHETER RELATED INFECTION [None]
  - VOMITING [None]
